FAERS Safety Report 9549807 (Version 3)
Quarter: 2014Q4

REPORT INFORMATION
  Report Type: Spontaneous
  Country: US (occurrence: US)
  Receive Date: 20130924
  Receipt Date: 20141230
  Transmission Date: 20150529
  Serious: No
  Sender: FDA-Public Use
  Company Number: US-009507513-1211USA012298

PATIENT
  Age: 35 Year
  Sex: Female

DRUGS (4)
  1. TRUVADA [Concomitant]
     Active Substance: EMTRICITABINE\TENOFOVIR DISOPROXIL FUMARATE
     Route: 048
  2. ISENTRESS [Suspect]
     Active Substance: RALTEGRAVIR POTASSIUM
     Indication: HIV INFECTION
     Dosage: 400 MG, BID
     Route: 048
     Dates: start: 20121121
  3. REYATAZ [Concomitant]
     Active Substance: ATAZANAVIR SULFATE
     Route: 048
  4. NORVIR [Concomitant]
     Active Substance: RITONAVIR
     Route: 048

REACTIONS (1)
  - Maternal exposure during pregnancy [Unknown]
